FAERS Safety Report 19209618 (Version 1)
Quarter: 2021Q2

REPORT INFORMATION
  Report Type: Spontaneous
  Country: US (occurrence: US)
  Receive Date: 20210503
  Receipt Date: 20210503
  Transmission Date: 20210717
  Serious: No
  Sender: FDA-Public Use
  Company Number: US-SA-2021SA141394

PATIENT
  Sex: Female

DRUGS (28)
  1. TRAZODONE HYDROCHLORIDE. [Concomitant]
     Active Substance: TRAZODONE HYDROCHLORIDE
  2. ZOCOR [Concomitant]
     Active Substance: SIMVASTATIN
  3. REGLAN [Concomitant]
     Active Substance: METOCLOPRAMIDE HYDROCHLORIDE
  4. ASPIRIN [ACETYLSALICYLIC ACID] [Concomitant]
     Active Substance: ASPIRIN
  5. DOCUSATE [Concomitant]
     Active Substance: DOCUSATE
     Indication: CONSTIPATION
  6. HUMALOG [Concomitant]
     Active Substance: INSULIN LISPRO
  7. KEVZARA [Suspect]
     Active Substance: SARILUMAB
     Indication: RHEUMATOID ARTHRITIS
     Route: 058
     Dates: start: 20190724
  8. CALCIUM [Concomitant]
     Active Substance: CALCIUM
  9. LANTUS [Concomitant]
     Active Substance: INSULIN GLARGINE
  10. TYLENOL [Concomitant]
     Active Substance: ACETAMINOPHEN
  11. STOOL SOFTENER (DOCUSATE) [Concomitant]
     Active Substance: DOCUSATE
  12. CYMBALTA [Concomitant]
     Active Substance: DULOXETINE HYDROCHLORIDE
  13. PREVACID [Concomitant]
     Active Substance: LANSOPRAZOLE
  14. LAMICTAL [Concomitant]
     Active Substance: LAMOTRIGINE
  15. LOSARTAN POTASSIUM. [Concomitant]
     Active Substance: LOSARTAN POTASSIUM
  16. METHOTREXATE. [Concomitant]
     Active Substance: METHOTREXATE
  17. GABAPENTINE [Concomitant]
     Active Substance: GABAPENTIN
  18. FIBER [Concomitant]
     Active Substance: PSYLLIUM HUSK
  19. OZEMPIC [Concomitant]
     Active Substance: SEMAGLUTIDE
     Dosage: 0.25 OR 0.5
  20. DOCULAX [Concomitant]
     Active Substance: DOCUSATE SODIUM
     Indication: CONSTIPATION
  21. RINVOQ [Concomitant]
     Active Substance: UPADACITINIB
  22. GAS RELIEF [Concomitant]
     Active Substance: DIMETHICONE
  23. VITAMIN D2 [Concomitant]
     Active Substance: ERGOCALCIFEROL
  24. ROPINIROLE [ROPINIROLE HYDROCHLORIDE] [Concomitant]
     Active Substance: ROPINIROLE HYDROCHLORIDE
  25. MULTIVITAMINS [VITAMINS NOS] [Concomitant]
     Active Substance: VITAMINS
  26. CELEBREX [Concomitant]
     Active Substance: CELECOXIB
     Dosage: UNK
  27. SYNTHROID [Concomitant]
     Active Substance: LEVOTHYROXINE SODIUM
  28. NORVASC [Concomitant]
     Active Substance: AMLODIPINE BESYLATE

REACTIONS (4)
  - Feeling abnormal [Unknown]
  - Constipation [Unknown]
  - Abdominal pain upper [Unknown]
  - Abdominal pain [Unknown]

NARRATIVE: CASE EVENT DATE: 202104
